FAERS Safety Report 7088594-1 (Version None)
Quarter: 2010Q4

REPORT INFORMATION
  Report Type: 
  Country: None (occurrence: None)
  Receive Date: 20101029
  Receipt Date: 20101021
  Transmission Date: 20110411
  Serious: Yes (Other)
  Sender: FDA-Public Use
  Company Number: ACO_02892_2010

PATIENT
  Sex: Female

DRUGS (3)
  1. AMPYRA [Suspect]
     Indication: ASTHENIA
     Dosage: (DF)
     Dates: start: 20100701
  2. AMPYRA [Suspect]
     Indication: GAIT DISTURBANCE
     Dosage: (DF)
     Dates: start: 20100701
  3. TYSABRI [Concomitant]

REACTIONS (5)
  - AMNESIA [None]
  - COMMUNICATION DISORDER [None]
  - DISTURBANCE IN ATTENTION [None]
  - EYE INFLAMMATION [None]
  - INFLAMMATION [None]
